FAERS Safety Report 5408622-6 (Version None)
Quarter: 2007Q3

REPORT INFORMATION
  Report Type: 
  Country: None (occurrence: None)
  Receive Date: 20070808
  Receipt Date: 20070803
  Transmission Date: 20080115
  Serious: Yes (Other)
  Sender: FDA-Public Use
  Company Number: PHEH2006US06481

PATIENT
  Age: 63 Year
  Sex: Female
  Weight: 72.562 kg

DRUGS (7)
  1. PREMARIN [Suspect]
     Indication: MENOPAUSE
     Dosage: 0.625/3 MG
     Route: 048
     Dates: start: 19930201, end: 19980201
  2. PREMARIN [Suspect]
     Dosage: 0.625/3 MG
     Route: 048
     Dates: start: 19980301, end: 20020401
  3. PROVERA [Suspect]
     Indication: MENOPAUSE
     Dosage: 5 MG, UNK
     Route: 048
     Dates: start: 19930201, end: 19950501
  4. MEDROXYPROGESTERONE [Suspect]
     Indication: MENOPAUSE
     Dosage: 2.5-5 MG
     Route: 048
     Dates: start: 19950501, end: 19990101
  5. MEDROXYPROGESTERONE [Suspect]
     Dosage: 2.5-5 MG
     Route: 048
     Dates: start: 19991101, end: 20020401
  6. ESTRADERM [Suspect]
     Indication: MENOPAUSE
     Dosage: 0.5 MG, UNK
     Route: 062
     Dates: start: 19980201, end: 19980301
  7. CYCRIN [Suspect]
     Indication: MENOPAUSE
     Dosage: 2.5 MG, UNK
     Dates: start: 19990201, end: 19991001

REACTIONS (17)
  - BENIGN LYMPH NODE NEOPLASM [None]
  - BIOPSY [None]
  - BREAST CANCER [None]
  - BREAST MASS [None]
  - CHEMOTHERAPY [None]
  - COLONOSCOPY ABNORMAL [None]
  - EMOTIONAL DISTRESS [None]
  - INCISIONAL DRAINAGE [None]
  - INTESTINAL POLYP [None]
  - INTESTINAL POLYPECTOMY [None]
  - MALIGNANT BREAST LUMP REMOVAL [None]
  - MASTITIS [None]
  - OESTROGEN RECEPTOR ASSAY POSITIVE [None]
  - OSTEOPENIA [None]
  - PROGESTERONE RECEPTOR ASSAY POSITIVE [None]
  - RADIOTHERAPY [None]
  - STAPHYLOCOCCAL INFECTION [None]
